FAERS Safety Report 13932383 (Version 6)
Quarter: 2018Q2

REPORT INFORMATION
  Report Type: Report from Study
  Country: JP (occurrence: JP)
  Receive Date: 20170904
  Receipt Date: 20180416
  Transmission Date: 20180711
  Serious: Yes (Death, Hospitalization, Other)
  Sender: FDA-Public Use
  Company Number: JP-ALXN-A201708177AA

PATIENT
  Age: 38 Year
  Sex: Female
  Weight: 42 kg

DRUGS (28)
  1. STRONG NEO-MINOPHAGEN C [Concomitant]
     Active Substance: AMMONIUM GLYCYRRHIZATE\CYSTEINE HYDROCHLORIDE\GLYCINE
     Indication: LIVER DISORDER
     Dosage: 100 ML, QD
     Route: 042
     Dates: start: 20170318, end: 20170404
  2. STRONG NEO-MINOPHAGEN C [Concomitant]
     Active Substance: AMMONIUM GLYCYRRHIZATE\CYSTEINE HYDROCHLORIDE\GLYCINE
     Dosage: 80-100ML, QD
     Route: 042
     Dates: start: 20170405, end: 20171202
  3. SOL-MELCORT [Concomitant]
     Active Substance: METHYLPREDNISOLONE SODIUM SUCCINATE
     Indication: THROMBOTIC MICROANGIOPATHY
     Dosage: 1 G, QD
     Route: 041
     Dates: start: 20170319, end: 20170321
  4. HUMULIN NOS [Concomitant]
     Active Substance: INSULIN HUMAN
     Indication: DIABETES MELLITUS
     Dosage: 20-80IU, QD
     Route: 041
     Dates: start: 20170317, end: 20171202
  5. SOLIRIS [Suspect]
     Active Substance: ECULIZUMAB
     Indication: HAEMOLYTIC URAEMIC SYNDROME
     Dosage: 900 MG, QW
     Route: 042
     Dates: start: 20170410
  6. GRAMALIL [Suspect]
     Active Substance: TIAPRIDE HYDROCHLORIDE
     Indication: HAEMOLYTIC URAEMIC SYNDROME
     Dosage: 25 MG, QD OR BID
     Route: 048
     Dates: start: 20170421, end: 20170510
  7. FUNGUARD [Suspect]
     Active Substance: MICAFUNGIN SODIUM
     Indication: PRODUCT USED FOR UNKNOWN INDICATION
     Dosage: 100 MG, QD
     Route: 042
     Dates: start: 20171013, end: 20171026
  8. REGPARA [Suspect]
     Active Substance: CINACALCET HYDROCHLORIDE
     Indication: PRODUCT USED FOR UNKNOWN INDICATION
     Dosage: 25 MG, QD
     Route: 048
     Dates: start: 20171024, end: 20171030
  9. WYSTAL [Concomitant]
     Active Substance: CEFOPERAZONE SODIUM\SULBACTAM SODIUM
     Dosage: 4 G, QD
     Route: 041
     Dates: start: 20170320, end: 20170321
  10. MEROPENEM. [Concomitant]
     Active Substance: MEROPENEM
     Indication: THROMBOTIC MICROANGIOPATHY
     Dosage: 0.5 G, QD
     Route: 041
     Dates: start: 20170322, end: 20170327
  11. ASPIRIN                            /00002701/ [Concomitant]
     Active Substance: ASPIRIN
     Indication: HAEMOLYTIC URAEMIC SYNDROME
     Dosage: 100 MG, QD
     Route: 048
     Dates: start: 20171013, end: 20171202
  12. WARFARIN K [Concomitant]
     Active Substance: WARFARIN POTASSIUM
     Indication: HAEMOLYTIC URAEMIC SYNDROME
     Dosage: 1-1.5 MG, QD
     Route: 048
     Dates: start: 20171113, end: 20171202
  13. SOLIRIS [Suspect]
     Active Substance: ECULIZUMAB
     Dosage: 1200 MG, UNK
     Route: 042
     Dates: start: 20170512
  14. WYSTAL [Concomitant]
     Active Substance: CEFOPERAZONE SODIUM\SULBACTAM SODIUM
     Indication: THROMBOTIC MICROANGIOPATHY
     Dosage: 1 G, QD
     Route: 041
     Dates: start: 20170318, end: 20170319
  15. MIYA-BM [Concomitant]
     Active Substance: CLOSTRIDIUM BUTYRICUM SPORES STRAIN M-55
     Indication: HAEMOLYTIC URAEMIC SYNDROME
  16. ASPIRIN                            /00002701/ [Concomitant]
     Active Substance: ASPIRIN
     Indication: HAEMOLYTIC URAEMIC SYNDROME
     Dosage: 0.1 G, QD
     Route: 041
     Dates: start: 20170920, end: 20170928
  17. RECOMODULIN [Concomitant]
     Active Substance: THROMBOMODULIN ALFA
     Indication: THROMBOTIC MICROANGIOPATHY
     Dosage: 5200 IU, QD
     Route: 041
     Dates: start: 20170318, end: 20170322
  18. GABEXATE MESILATE [Concomitant]
     Active Substance: GABEXATE MESYLATE
     Indication: THROMBOTIC MICROANGIOPATHY
     Dosage: 1500 MG, QD
     Route: 041
     Dates: start: 20170322, end: 20170410
  19. BLOPRESS [Concomitant]
     Active Substance: CANDESARTAN CILEXETIL
     Indication: HYPERTENSION
     Dosage: 2 MG, QD
     Route: 048
     Dates: start: 20170615, end: 20170619
  20. HEPARIN [Concomitant]
     Active Substance: HEPARIN SODIUM
     Indication: HAEMOLYTIC URAEMIC SYNDROME
     Dosage: 5-10ML, QD
     Route: 041
     Dates: start: 20170710, end: 20171201
  21. MEROPENEM. [Suspect]
     Active Substance: MEROPENEM
     Indication: PRODUCT USED FOR UNKNOWN INDICATION
     Dosage: 0.5 G, QD
     Route: 041
     Dates: start: 20170701, end: 20170704
  22. CUBICIN [Suspect]
     Active Substance: DAPTOMYCIN
     Indication: PRODUCT USED FOR UNKNOWN INDICATION
     Dosage: 200 MG, QD
     Route: 042
     Dates: start: 20171117, end: 20171120
  23. GABEXATE MESILATE [Concomitant]
     Active Substance: GABEXATE MESYLATE
     Indication: PANCREATITIS ACUTE
  24. LULLAN [Suspect]
     Active Substance: PEROSPIRONE HYDROCHLORIDE
     Indication: HAEMOLYTIC URAEMIC SYNDROME
     Dosage: 8-20MG, QD OR BID
     Route: 048
     Dates: start: 20170511, end: 20170519
  25. NEUART [Concomitant]
     Active Substance: ANTITHROMBIN III HUMAN
     Indication: THROMBOTIC MICROANGIOPATHY
     Dosage: 1500 IU, QD
     Route: 041
     Dates: start: 20170323, end: 20170325
  26. MIYA-BM [Concomitant]
     Active Substance: CLOSTRIDIUM BUTYRICUM SPORES STRAIN M-55
     Indication: THROMBOTIC MICROANGIOPATHY
     Dosage: 1 DF, TID
     Route: 048
     Dates: start: 20170319, end: 20170526
  27. AMLODIPINE [Concomitant]
     Active Substance: AMLODIPINE BESYLATE
     Indication: HYPERTENSION
     Dosage: 5-10MG, QD
     Route: 048
     Dates: start: 20170531, end: 20170621
  28. RISPERIDONE. [Concomitant]
     Active Substance: RISPERIDONE
     Indication: HAEMOLYTIC URAEMIC SYNDROME
     Dosage: 0.5-1.0MG, QD
     Route: 048
     Dates: start: 20170415, end: 20170426

REACTIONS (24)
  - Candida infection [Not Recovered/Not Resolved]
  - Pyrexia [Not Recovered/Not Resolved]
  - Blood parathyroid hormone increased [Recovering/Resolving]
  - Pulmonary haemorrhage [Fatal]
  - Thrombotic cerebral infarction [Not Recovered/Not Resolved]
  - Thrombocytopenia [Recovered/Resolved]
  - Hepatic function abnormal [Recovered/Resolved]
  - Hepatic function abnormal [Recovered/Resolved]
  - Thrombotic microangiopathy [Recovered/Resolved]
  - Cerebral artery occlusion [Not Recovered/Not Resolved]
  - Peripheral artery thrombosis [Not Recovered/Not Resolved]
  - Hypercalcaemia [Recovered/Resolved]
  - Hepatic function abnormal [Recovered/Resolved]
  - Vena cava thrombosis [Not Recovered/Not Resolved]
  - Haematochezia [Recovered/Resolved]
  - Inappropriate schedule of drug administration [Unknown]
  - Haematochezia [Recovered/Resolved]
  - Cellulitis [Recovered/Resolved with Sequelae]
  - Thrombotic microangiopathy [Recovered/Resolved]
  - Thrombotic microangiopathy [Not Recovered/Not Resolved]
  - Sepsis [Fatal]
  - Hepatic function abnormal [Recovered/Resolved]
  - Venous thrombosis limb [Recovered/Resolved]
  - Hypothyroidism [Recovered/Resolved]

NARRATIVE: CASE EVENT DATE: 20170508
